FAERS Safety Report 23437182 (Version 1)
Quarter: 2024Q1

REPORT INFORMATION
  Report Type: Spontaneous
  Country: IT (occurrence: IT)
  Receive Date: 20240124
  Receipt Date: 20240124
  Transmission Date: 20240409
  Serious: Yes (Other)
  Sender: FDA-Public Use
  Company Number: None

PATIENT
  Age: 65 Year
  Sex: Male
  Weight: 70 kg

DRUGS (11)
  1. LUCENTIS [Suspect]
     Active Substance: RANIBIZUMAB
     Indication: Choroidal neovascularisation
     Dosage: 1 DOSAGE FORM (1ST INTRAVITREAL INJECTION LEFT EYE)
     Route: 050
     Dates: start: 20220128, end: 20220128
  2. LUCENTIS [Suspect]
     Active Substance: RANIBIZUMAB
     Dosage: 1 DOSAGE FORM (2ND INTRAVITREAL INJECTION LEFT EYE)
     Route: 050
     Dates: start: 20220329, end: 20220329
  3. LUCENTIS [Suspect]
     Active Substance: RANIBIZUMAB
     Dosage: 1 DOSAGE FORM (3RD INTRAVITREAL INJECTION LEFT EYE)
     Route: 050
     Dates: start: 20220926, end: 20220926
  4. LUCENTIS [Suspect]
     Active Substance: RANIBIZUMAB
     Dosage: 1 DOSAGE FORM (4TH INTRAVITREAL INJECTION LEFT EYE)
     Route: 050
     Dates: start: 20221201, end: 20221201
  5. LUCENTIS [Suspect]
     Active Substance: RANIBIZUMAB
     Dosage: 1 DOSAGE FORM (5TH INTRAVITREAL INJECTION LEFT EYE)
     Route: 050
     Dates: start: 20230306, end: 20230306
  6. LUCENTIS [Suspect]
     Active Substance: RANIBIZUMAB
     Dosage: 1 DOSAGE FORM (6TH INTRAVITREAL INJECTION LEFT EYE)
     Route: 050
     Dates: start: 20230530, end: 20230530
  7. LUCENTIS [Suspect]
     Active Substance: RANIBIZUMAB
     Dosage: 1 DOSAGE FORM (7TH INTRAVITREAL INJECTION LEFT EYE)
     Route: 050
     Dates: start: 20231003, end: 20231003
  8. AVASTIN [Suspect]
     Active Substance: BEVACIZUMAB
     Indication: Choroidal neovascularisation
     Dosage: 1 DOSAGE FORM (1ST INTRAVITREAL INJECTION RIGHT EYE)
     Route: 050
     Dates: start: 20220720, end: 20220720
  9. AVASTIN [Suspect]
     Active Substance: BEVACIZUMAB
     Dosage: 1 DOSAGE FORM (2ND INTRAVITREAL INJECTION RIGHT EYE)
     Route: 050
     Dates: start: 20221213, end: 20221213
  10. AVASTIN [Suspect]
     Active Substance: BEVACIZUMAB
     Dosage: 1 DOSAGE FORM (3RD INTRAVITREAL INJECTION RIGHT EYE)
     Route: 050
     Dates: start: 20230403, end: 20230403
  11. AVASTIN [Suspect]
     Active Substance: BEVACIZUMAB
     Dosage: 1 DOSAGE FORM (4TH INTRAVITREAL INJECTION RIGHT EYE)
     Route: 050
     Dates: start: 20230911, end: 20230911

REACTIONS (3)
  - Subretinal fluid [Not Recovered/Not Resolved]
  - Detachment of retinal pigment epithelium [Not Recovered/Not Resolved]
  - Therapeutic product effect decreased [Not Recovered/Not Resolved]

NARRATIVE: CASE EVENT DATE: 20231220
